FAERS Safety Report 9263154 (Version 8)
Quarter: 2015Q2

REPORT INFORMATION
  Report Type: Spontaneous
  Country: US (occurrence: US)
  Receive Date: 20130430
  Receipt Date: 20150610
  Transmission Date: 20150821
  Serious: Yes (Other)
  Sender: FDA-Public Use
  Company Number: US-009507513-1304USA016954

PATIENT
  Sex: Male

DRUGS (7)
  1. PROSCAR [Suspect]
     Active Substance: FINASTERIDE
     Indication: PROSTATITIS
     Dosage: 5 MG, QD
     Route: 048
     Dates: start: 1997, end: 2005
  2. PROPECIA [Suspect]
     Active Substance: FINASTERIDE
     Indication: PROSTATITIS
     Route: 048
  3. FINASTERIDE. [Suspect]
     Active Substance: FINASTERIDE
     Indication: PROSTATITIS
     Dosage: 5 MG, QD
     Route: 048
     Dates: start: 20061122, end: 201205
  4. FINASTERIDE. [Suspect]
     Active Substance: FINASTERIDE
     Indication: ALOPECIA
  5. PROSCAR [Suspect]
     Active Substance: FINASTERIDE
     Indication: ALOPECIA
  6. PROPECIA [Suspect]
     Active Substance: FINASTERIDE
     Indication: ALOPECIA
  7. PROSCAR [Suspect]
     Active Substance: FINASTERIDE
     Indication: PROCTALGIA

REACTIONS (43)
  - Hypertension [Unknown]
  - Epididymitis [Unknown]
  - Bronchitis [Unknown]
  - Sinusitis [Unknown]
  - Skin lesion [Unknown]
  - Fatigue [Not Recovered/Not Resolved]
  - Penis injury [Unknown]
  - Weight decreased [Unknown]
  - Pain [Unknown]
  - Sleep disorder [Unknown]
  - Appetite disorder [Unknown]
  - Glucose tolerance impaired [Unknown]
  - Surgery [Unknown]
  - Dysuria [Not Recovered/Not Resolved]
  - Breast mass [Unknown]
  - Social phobia [Unknown]
  - Sexual dysfunction [Unknown]
  - Off label use [Unknown]
  - Constipation [Unknown]
  - Surgery [Unknown]
  - Back pain [Unknown]
  - Gynaecomastia [Unknown]
  - Abdominal pain [Unknown]
  - Memory impairment [Unknown]
  - Peyronie^s disease [Not Recovered/Not Resolved]
  - Anxiety [Not Recovered/Not Resolved]
  - Irritability [Unknown]
  - Painful erection [Not Recovered/Not Resolved]
  - Pain in extremity [Unknown]
  - Nerve injury [Unknown]
  - Drug administration error [Unknown]
  - Arthralgia [Unknown]
  - Decreased appetite [Unknown]
  - Headache [Unknown]
  - Gait disturbance [Unknown]
  - Abdominal pain upper [Unknown]
  - Erectile dysfunction [Not Recovered/Not Resolved]
  - Penile discharge [Unknown]
  - Nausea [Unknown]
  - Vomiting [Unknown]
  - Insomnia [Unknown]
  - Arthritis [Unknown]
  - Surgery [Unknown]

NARRATIVE: CASE EVENT DATE: 1999
